FAERS Safety Report 10056273 (Version 4)
Quarter: 2016Q1

REPORT INFORMATION
  Report Type: Spontaneous
  Country: JP (occurrence: JP)
  Receive Date: 20140403
  Receipt Date: 20160316
  Transmission Date: 20160525
  Serious: Yes (Hospitalization)
  Sender: FDA-Public Use
  Company Number: JP-MALLINCKRODT-T201401577

PATIENT
  Age: 56 Year
  Sex: Female

DRUGS (32)
  1. METHADONE [Suspect]
     Active Substance: METHADONE HYDROCHLORIDE
     Indication: CANCER PAIN
     Dosage: 5 MG, (15 MG DAILY DOSE)
     Route: 048
     Dates: start: 20140114, end: 20140120
  2. MYSLEE [Concomitant]
     Active Substance: ZOLPIDEM TARTRATE
     Dosage: 10 MG, UNK
     Route: 048
  3. AMOXAN [Concomitant]
     Active Substance: AMOXAPINE
     Dosage: 25 MG, UNK
     Route: 048
  4. YOKUKANSAN [Concomitant]
     Active Substance: HERBALS
     Indication: ANALGESIC THERAPY
     Dosage: 7.5 G
     Route: 048
     Dates: start: 20140624, end: 20140714
  5. MEROPENEM. [Concomitant]
     Active Substance: MEROPENEM
     Dosage: 1 G, UNK
     Route: 051
     Dates: start: 20140118, end: 20140120
  6. ROCEPHIN [Concomitant]
     Active Substance: CEFTRIAXONE SODIUM
     Dosage: 1 G, UNK
     Route: 051
     Dates: start: 20140121, end: 20140121
  7. SEROQUEL [Concomitant]
     Active Substance: QUETIAPINE FUMARATE
     Dosage: 25 MG, UNK
     Route: 048
  8. NAIXAN [Concomitant]
     Active Substance: NAPROXEN SODIUM
     Indication: ANALGESIC THERAPY
     Dosage: 300 MG
     Route: 048
     Dates: start: 20140606
  9. METHADONE [Suspect]
     Active Substance: METHADONE HYDROCHLORIDE
     Dosage: 20 MG, (40 MG DAILY DOSE)
     Route: 048
     Dates: start: 20140205, end: 20140608
  10. OXINORM [Concomitant]
     Active Substance: OXYCODONE HYDROCHLORIDE
     Dosage: 80 MG
     Route: 048
     Dates: start: 20140114, end: 20140415
  11. GASTER [Concomitant]
     Active Substance: FAMOTIDINE
     Dosage: 40 MG, UNK
     Route: 048
  12. GABALON [Concomitant]
     Active Substance: BACLOFEN
     Dosage: 15 MG, UNK
     Route: 048
  13. METHADONE [Suspect]
     Active Substance: METHADONE HYDROCHLORIDE
     Dosage: 10 MG, (20 MG DAILY DOSE)
     Route: 048
     Dates: start: 20140121, end: 20140129
  14. METHADONE [Suspect]
     Active Substance: METHADONE HYDROCHLORIDE
     Dosage: 30 MG, (60 MG DAILY DOSE)
     Route: 048
     Dates: start: 20140619
  15. ROCEPHIN [Concomitant]
     Active Substance: CEFTRIAXONE SODIUM
     Dosage: 0.5 G, UNK
     Route: 051
     Dates: start: 20140121, end: 20140121
  16. OXYCONTIN [Concomitant]
     Active Substance: OXYCODONE HYDROCHLORIDE
  17. CYMBALTA [Concomitant]
     Active Substance: DULOXETINE HYDROCHLORIDE
     Dosage: 40 MG
     Route: 048
     Dates: start: 20140710
  18. OXINORM [Concomitant]
     Active Substance: OXYCODONE HYDROCHLORIDE
     Dosage: 120 MG
     Route: 048
     Dates: start: 20140416
  19. GABAPEN [Concomitant]
     Active Substance: GABAPENTIN
     Dosage: 600 MG, UNK
     Route: 048
     Dates: end: 20140115
  20. CELECOX [Concomitant]
     Active Substance: CELECOXIB
     Indication: ANALGESIC THERAPY
     Dosage: 200 MG
     Route: 048
  21. CELECOX [Concomitant]
     Active Substance: CELECOXIB
     Dosage: 300 MG
     Route: 048
     Dates: start: 20140306, end: 20140605
  22. LANDSEN [Concomitant]
     Active Substance: CLONAZEPAM
     Dosage: 5 MG, UNK
     Route: 048
  23. CYMBALTA [Concomitant]
     Active Substance: DULOXETINE HYDROCHLORIDE
     Indication: ANALGESIC THERAPY
     Dosage: 20 MG
     Route: 048
     Dates: start: 20140704, end: 20140709
  24. OXINORM [Concomitant]
     Active Substance: OXYCODONE HYDROCHLORIDE
     Indication: ANALGESIC THERAPY
     Dosage: 30 MG, PRN
     Route: 048
     Dates: start: 20140113
  25. FERROMIA [Concomitant]
     Active Substance: FERROUS CITRATE
     Dosage: 100 MG, UNK
     Route: 048
     Dates: end: 20140214
  26. METHADONE [Suspect]
     Active Substance: METHADONE HYDROCHLORIDE
     Dosage: 15 MG, (30 MG DAILY DOSE)
     Route: 048
     Dates: start: 20140130, end: 20140204
  27. METHADONE [Suspect]
     Active Substance: METHADONE HYDROCHLORIDE
     Dosage: 25 MG, (50 MG DAILY DOSE)
     Route: 048
     Dates: start: 20140609, end: 20140618
  28. MAGMITT [Concomitant]
     Active Substance: MAGNESIUM OXIDE
     Dosage: 1980 MG, UNK
     Route: 048
  29. DEPAKENE [Concomitant]
     Active Substance: VALPROIC ACID
     Dosage: 400 MG, UNK
     Route: 048
  30. FENTANYL. [Concomitant]
     Active Substance: FENTANYL
     Dosage: 12.6 MG/3 DAYS
     Route: 062
  31. CALONAL [Concomitant]
     Active Substance: ACETAMINOPHEN
     Dosage: 2400 MG, UNK
     Route: 048
  32. CRAVIT [Concomitant]
     Active Substance: LEVOFLOXACIN
     Dosage: 500 MG, UNK
     Route: 048
     Dates: start: 20140122, end: 20140203

REACTIONS (4)
  - Rhinorrhoea [Recovering/Resolving]
  - Hyperhidrosis [Not Recovered/Not Resolved]
  - Insomnia [Recovering/Resolving]
  - Bacteraemia [Recovered/Resolved]

NARRATIVE: CASE EVENT DATE: 20140117
